FAERS Safety Report 7845096-X (Version None)
Quarter: 2011Q4

REPORT INFORMATION
  Report Type: 
  Country: None (occurrence: None)
  Receive Date: 20111025
  Receipt Date: 20111017
  Transmission Date: 20120403
  Serious: Yes (Other)
  Sender: FDA-Public Use
  Company Number: DE-JNJFOC-20110901172

PATIENT
  Sex: Male
  Weight: 150 kg

DRUGS (5)
  1. ASPIRIN [Concomitant]
     Route: 048
     Dates: start: 20110101
  2. USTEKINUMAB [Suspect]
     Route: 058
     Dates: start: 20110801
  3. USTEKINUMAB [Suspect]
     Indication: PSORIASIS
     Route: 058
     Dates: start: 20090224, end: 20110301
  4. JANUMET [Concomitant]
     Route: 048
     Dates: start: 20080101
  5. RAMIPRIL [Concomitant]
     Route: 048
     Dates: start: 20101201

REACTIONS (2)
  - CARDIAC FAILURE [None]
  - MYOCARDIAL INFARCTION [None]
